FAERS Safety Report 5696410-5 (Version None)
Quarter: 2008Q2

REPORT INFORMATION
  Report Type: 
  Country: None (occurrence: None)
  Receive Date: 20080408
  Receipt Date: 20080328
  Transmission Date: 20081010
  Serious: Yes (Hospitalization)
  Sender: FDA-Public Use
  Company Number: FR-RANBAXY-2008RR-13474

PATIENT

DRUGS (5)
  1. IBUPROFENE RPG 200MG COMPRIME PELLICULE [Suspect]
     Indication: PHARYNGITIS
  2. IBUPROFENE RPG 200MG COMPRIME PELLICULE [Suspect]
     Indication: CONJUNCTIVITIS
  3. IBUPROFENE RPG 200MG COMPRIME PELLICULE [Suspect]
     Indication: PYREXIA
  4. AMOXICILLINE RPG 1G COMPRIME DISPERSIBLE [Suspect]
  5. LEVONORGESTREL AND ETHINYL ESTRADIOL [Concomitant]
     Indication: CONTRACEPTION
     Route: 048

REACTIONS (2)
  - HEPATITIS CHOLESTATIC [None]
  - STEVENS-JOHNSON SYNDROME [None]
